FAERS Safety Report 6975314-1 (Version None)
Quarter: 2010Q3

REPORT INFORMATION
  Report Type: 
  Country: None (occurrence: None)
  Receive Date: 20100910
  Receipt Date: 20090304
  Transmission Date: 20110219
  Serious: No
  Sender: FDA-Public Use
  Company Number: US-WYE-H08471609

PATIENT
  Age: 46 Year
  Sex: Female

DRUGS (2)
  1. PRISTIQ [Suspect]
     Indication: ANXIETY
     Route: 048
     Dates: start: 20090302, end: 20090304
  2. PRISTIQ [Suspect]
     Indication: HOT FLUSH

REACTIONS (5)
  - INITIAL INSOMNIA [None]
  - INSOMNIA [None]
  - PALPITATIONS [None]
  - TENSION [None]
  - VISION BLURRED [None]
